FAERS Safety Report 21387531 (Version 1)
Quarter: 2022Q3

REPORT INFORMATION
  Report Type: Spontaneous
  Country: CO (occurrence: CO)
  Receive Date: 20220928
  Receipt Date: 20220928
  Transmission Date: 20221027
  Serious: Yes (Other)
  Sender: FDA-Public Use
  Company Number: CO-AMGEN-COLSP2022165361

PATIENT
  Age: 59 Year
  Sex: Male
  Weight: 74 kg

DRUGS (7)
  1. MVASI [Suspect]
     Active Substance: BEVACIZUMAB-AWWB
     Indication: Lung carcinoma cell type unspecified stage 0
     Dosage: 100 MILLIGRAM, BOLUS, FOR 90 MIN. -ADMINISTER DURING THE DAYS: 1.15 - NUMBER OF DAYS: 2
     Route: 042
     Dates: start: 20220830
  2. FOSAPREPITANT [Concomitant]
     Active Substance: FOSAPREPITANT
     Indication: Lung carcinoma cell type unspecified stage 0
     Dosage: 150 MILLIGRAM, BOLUS, FOR 0MIN. - ADMINISTER DURING THE DAYS:V
     Route: 040
     Dates: start: 20220830
  3. PALONOSETRON [Concomitant]
     Active Substance: PALONOSETRON
     Indication: Lung carcinoma cell type unspecified stage 0
     Dosage: 25 MILLIGRAM, BOLUS, FOR 0 MIN. -ADMINISTER DURING THE DAYS: 1.15 -NUMBER OF DAYS: 2
     Route: 040
     Dates: start: 20220830
  4. DEXAMETHASONE PHOSPHATE [Concomitant]
     Active Substance: DEXAMETHASONE PHOSPHATE
     Indication: Lung carcinoma cell type unspecified stage 0
     Dosage: 8 MILLIGRAM, BOLUS, FOR 0 MIN. - ADMINISTER DURING THE DAYS: 1.15 - NUMBER OF DAYS: 2 -TOTAL AMOUNT:
     Route: 040
     Dates: start: 20220830
  5. OXALIPLATIN [Concomitant]
     Active Substance: OXALIPLATIN
     Indication: Lung carcinoma cell type unspecified stage 0
     Dosage: 245.7 MILLIGRAM, INFUSION, FOR 2 HOURS.ADMINISTER DURING THE DAYS: 1.15 -NUMBER OF DAYS: 2
     Route: 040
     Dates: start: 20220830
  6. ONDANSETRON [Concomitant]
     Active Substance: ONDANSETRON
     Indication: Lung carcinoma cell type unspecified stage 0
     Dosage: 8 MILLIGRAM, Q12H
     Route: 048
     Dates: start: 20220830
  7. PREDNISOLONE [Concomitant]
     Active Substance: PREDNISOLONE

REACTIONS (3)
  - Cushing^s syndrome [Not Recovered/Not Resolved]
  - Dyspnoea [Not Recovered/Not Resolved]
  - Chest pain [Not Recovered/Not Resolved]

NARRATIVE: CASE EVENT DATE: 20220921
